FAERS Safety Report 13900642 (Version 1)
Quarter: 2017Q3

REPORT INFORMATION
  Report Type: Spontaneous
  Country: IT (occurrence: IT)
  Receive Date: 20170824
  Receipt Date: 20170824
  Transmission Date: 20171127
  Serious: Yes (Other)
  Sender: FDA-Public Use
  Company Number: IT-BRISTOL-MYERS SQUIBB COMPANY-BMS-2017-074505

PATIENT
  Sex: Female

DRUGS (1)
  1. NIVOLUMAB [Suspect]
     Active Substance: NIVOLUMAB
     Indication: ADENOCARCINOMA
     Dosage: UNK
     Route: 065
     Dates: start: 201706

REACTIONS (9)
  - Amaurosis [Unknown]
  - Pyrexia [Unknown]
  - Product use in unapproved indication [Unknown]
  - Pleural effusion [Unknown]
  - Vomiting [Unknown]
  - Fatigue [Unknown]
  - Productive cough [Unknown]
  - Cough [Unknown]
  - Hepatic pain [Unknown]
